FAERS Safety Report 4949820-5 (Version None)
Quarter: 2006Q1

REPORT INFORMATION
  Report Type: 
  Country: None (occurrence: None)
  Receive Date: 20060315
  Receipt Date: 20060310
  Transmission Date: 20060701
  Serious: Yes (Hospitalization, Other)
  Sender: FDA-Public Use
  Company Number: ITWYE387413FEB06

PATIENT
  Age: 44 Year
  Sex: Male

DRUGS (15)
  1. RAPAMUNE [Suspect]
     Dosage: 6 MG 1X PER 1 DAY; ORAL (SEE IMAGE)
     Route: 048
     Dates: start: 20051010, end: 20051010
  2. RAPAMUNE [Suspect]
     Dosage: 6 MG 1X PER 1 DAY; ORAL (SEE IMAGE)
     Route: 048
     Dates: start: 20051011, end: 20051024
  3. RAPAMUNE [Suspect]
     Dosage: 6 MG 1X PER 1 DAY; ORAL (SEE IMAGE)
     Route: 048
     Dates: start: 20051025, end: 20051113
  4. RAPAMUNE [Suspect]
     Dosage: 6 MG 1X PER 1 DAY; ORAL (SEE IMAGE)
     Route: 048
     Dates: start: 20051114, end: 20051114
  5. RAPAMUNE [Suspect]
     Dosage: 6 MG 1X PER 1 DAY; ORAL (SEE IMAGE)
     Route: 048
     Dates: start: 20051115, end: 20051124
  6. RAPAMUNE [Suspect]
     Dosage: 6 MG 1X PER 1 DAY; ORAL (SEE IMAGE)
     Route: 048
     Dates: start: 20051125, end: 20060209
  7. PREDNISONE [Concomitant]
  8. SULFAMETHOXAZOLE + TRIMETHOPRIM [Concomitant]
  9. AMLODIPINE [Concomitant]
  10. ATORVASTATIN CALCIUM [Concomitant]
  11. CARVEDILOL [Concomitant]
  12. INSULIN [Concomitant]
  13. OMEPRAZOLE [Concomitant]
  14. VALSARTAN [Concomitant]
  15. CEFTAZIDIME [Concomitant]

REACTIONS (7)
  - ARTERIOVENOUS FISTULA [None]
  - BLOOD TRIGLYCERIDES INCREASED [None]
  - BLOOD UREA INCREASED [None]
  - HAEMODIALYSIS [None]
  - KIDNEY TRANSPLANT REJECTION [None]
  - SCAR [None]
  - WEIGHT INCREASED [None]
